FAERS Safety Report 8517690-4 (Version None)
Quarter: 2012Q3

REPORT INFORMATION
  Report Type: 
  Country: None (occurrence: None)
  Receive Date: 20120718
  Receipt Date: 20120709
  Transmission Date: 20120928
  Serious: Yes (Hospitalization, Other)
  Sender: FDA-Public Use
  Company Number: US-ASTRAZENECA-2010SE28171

PATIENT
  Age: 75 Year
  Sex: Male

DRUGS (3)
  1. NEXIUM [Suspect]
     Indication: GASTROOESOPHAGEAL REFLUX DISEASE
     Route: 048
  2. PULMICORT FLEXHALER [Suspect]
     Indication: ASTHMA
     Route: 055
  3. CASODEX [Suspect]
     Indication: PROSTATE CANCER
     Route: 048

REACTIONS (4)
  - INTENTIONAL DRUG MISUSE [None]
  - MYOCARDIAL INFARCTION [None]
  - ASTHMA [None]
  - PROSTATE CANCER [None]
